FAERS Safety Report 25111633 (Version 1)
Quarter: 2025Q1

REPORT INFORMATION
  Report Type: Spontaneous
  Country: FR (occurrence: FR)
  Receive Date: 20250324
  Receipt Date: 20250324
  Transmission Date: 20250409
  Serious: Yes (Other)
  Sender: JOHNSON AND JOHNSON
  Company Number: FR-JNJFOC-20241260813

PATIENT
  Sex: Male

DRUGS (2)
  1. CONCERTA [Suspect]
     Active Substance: METHYLPHENIDATE HYDROCHLORIDE
     Indication: Bipolar disorder
     Route: 065
  2. CONCERTA [Suspect]
     Active Substance: METHYLPHENIDATE HYDROCHLORIDE
     Route: 065
     Dates: start: 2008

REACTIONS (6)
  - Suicidal behaviour [Unknown]
  - Off label use [Unknown]
  - Withdrawal syndrome [Unknown]
  - Condition aggravated [Unknown]
  - Product availability issue [Unknown]
  - Insomnia [Unknown]

NARRATIVE: CASE EVENT DATE: 20080101
